FAERS Safety Report 7577011-0 (Version None)
Quarter: 2011Q2

REPORT INFORMATION
  Report Type: 
  Country: None (occurrence: None)
  Receive Date: 20110628
  Receipt Date: 20110622
  Transmission Date: 20111010
  Serious: No
  Sender: FDA-Public Use
  Company Number: US-PFIZER INC-2011139538

PATIENT
  Sex: Male
  Weight: 71 kg

DRUGS (5)
  1. POTASSIUM [Concomitant]
     Indication: CARDIAC DISORDER
     Dosage: 20 MEQ, UNK
  2. NIFEDIPINE [Suspect]
     Indication: BLOOD PRESSURE ABNORMAL
     Dosage: 30 MG, 1X/DAY
     Route: 048
     Dates: start: 20000101
  3. ZETIA [Concomitant]
     Indication: CARDIAC DISORDER
     Dosage: 10 MG, ALTERNATE DAY
  4. FUROSEMIDE [Concomitant]
     Indication: CARDIAC DISORDER
     Dosage: 40 MG, UNK
  5. PLAVIX [Concomitant]
     Indication: CARDIAC DISORDER
     Dosage: 75 MG, UNK

REACTIONS (1)
  - MEDICATION RESIDUE [None]
